FAERS Safety Report 17875770 (Version 1)
Quarter: 2020Q2

REPORT INFORMATION
  Report Type: Spontaneous
  Country: DK (occurrence: DK)
  Receive Date: 20200609
  Receipt Date: 20200609
  Transmission Date: 20200714
  Serious: Yes (Other)
  Sender: FDA-Public Use
  Company Number: DK-TEVA-2020-DK-1245950

PATIENT
  Age: 14 Year
  Sex: Male
  Weight: 45 kg

DRUGS (2)
  1. ATOMOXETIN TEVA [Suspect]
     Active Substance: ATOMOXETINE HYDROCHLORIDE
     Indication: ATTENTION DEFICIT HYPERACTIVITY DISORDER
     Route: 048
     Dates: start: 20200220
  2. ATOMOXETINE ACCORD [Suspect]
     Active Substance: ATOMOXETINE HYDROCHLORIDE
     Indication: ATTENTION DEFICIT HYPERACTIVITY DISORDER
     Route: 048
     Dates: start: 20200123

REACTIONS (4)
  - Product substitution issue [Unknown]
  - Aggression [Unknown]
  - Disturbance in attention [Unknown]
  - Suicidal ideation [Unknown]

NARRATIVE: CASE EVENT DATE: 202001
